FAERS Safety Report 4342944-5 (Version None)
Quarter: 2004Q1

REPORT INFORMATION
  Report Type: 
  Country: None (occurrence: None)
  Receive Date: 20040325
  Receipt Date: 20031218
  Transmission Date: 20041129
  Serious: No
  Sender: FDA-Public Use
  Company Number: USA030228506

PATIENT
  Age: 82 Year
  Sex: Female
  Weight: 62 kg

DRUGS (6)
  1. FORTEO [Suspect]
     Indication: BONE DENSITY DECREASED
     Dosage: 20 UG/DAY
     Dates: start: 20030211
  2. FORTEO [Suspect]
     Indication: OSTEOPOROSIS
     Dosage: 20 UG/DAY
     Dates: start: 20030211
  3. EVISTA [Concomitant]
  4. FOSAMAX [Concomitant]
  5. CELEBREX [Concomitant]
  6. OXYCODONE AND ASPIRIN [Concomitant]

REACTIONS (4)
  - ARTHRALGIA [None]
  - DRUG INEFFECTIVE [None]
  - INJECTION SITE ERYTHEMA [None]
  - ROTATOR CUFF SYNDROME [None]
